FAERS Safety Report 25529611 (Version 2)
Quarter: 2025Q3

REPORT INFORMATION
  Report Type: Spontaneous
  Country: CN (occurrence: CN)
  Receive Date: 20250708
  Receipt Date: 20250810
  Transmission Date: 20251020
  Serious: Yes (Hospitalization, Other)
  Sender: ALEXION PHARMACEUTICALS
  Company Number: CN-ASTRAZENECA-202507CHN000062CN

PATIENT
  Age: 76 Year
  Sex: Male
  Weight: 60 kg

DRUGS (2)
  1. DAPAGLIFLOZIN [Suspect]
     Active Substance: DAPAGLIFLOZIN
     Indication: Diabetes mellitus
     Dosage: 10 MILLIGRAM, QD
     Dates: start: 20250501, end: 20250625
  2. INSULIN ASPART\INSULIN DEGLUDEC [Concomitant]
     Active Substance: INSULIN ASPART\INSULIN DEGLUDEC
     Indication: Diabetes mellitus
     Dates: start: 20250501, end: 20250618

REACTIONS (3)
  - Haematuria [Recovering/Resolving]
  - Urinary tract infection [Recovered/Resolved]
  - Hypertensive crisis [Unknown]

NARRATIVE: CASE EVENT DATE: 20250618
